FAERS Safety Report 21095070 (Version 1)
Quarter: 2022Q3

REPORT INFORMATION
  Report Type: Spontaneous
  Country: CN (occurrence: CN)
  Receive Date: 20220718
  Receipt Date: 20220718
  Transmission Date: 20221027
  Serious: No
  Sender: FDA-Public Use
  Company Number: CN-ELI_LILLY_AND_COMPANY-CN202207005890

PATIENT
  Age: 40 Year
  Sex: Male
  Weight: 70 kg

DRUGS (3)
  1. CIALIS [Suspect]
     Active Substance: TADALAFIL
     Indication: Erectile dysfunction
     Dosage: 40 MG, DAILY
     Route: 048
     Dates: start: 2018
  2. CIALIS [Suspect]
     Active Substance: TADALAFIL
     Dosage: 5 MG, DAILY
     Route: 048
     Dates: start: 2022
  3. CIALIS [Suspect]
     Active Substance: TADALAFIL
     Dosage: 20 MG, SINGLE
     Route: 048
     Dates: start: 20220707

REACTIONS (2)
  - Ocular hyperaemia [Unknown]
  - Overdose [Unknown]

NARRATIVE: CASE EVENT DATE: 20180101
